FAERS Safety Report 5913454-6 (Version None)
Quarter: 2008Q4

REPORT INFORMATION
  Report Type: 
  Country: None (occurrence: None)
  Receive Date: 20081009
  Receipt Date: 20080929
  Transmission Date: 20090506
  Serious: Yes (Death, Hospitalization)
  Sender: FDA-Public Use
  Company Number: IN-BAXTER-2008BH010243

PATIENT
  Age: 73 Year
  Sex: Female
  Weight: 53 kg

DRUGS (10)
  1. DIANEAL [Suspect]
     Indication: RENAL FAILURE CHRONIC
     Route: 033
     Dates: start: 20080901, end: 20080927
  2. DIANEAL [Suspect]
     Route: 033
     Dates: start: 20080901, end: 20080927
  3. DIANEAL [Suspect]
     Route: 033
     Dates: start: 20080901, end: 20080927
  4. DIANEAL [Suspect]
     Dosage: DOSE UNIT:UNKNOWN
     Route: 033
     Dates: start: 20060601, end: 20080901
  5. CARNITOR [Concomitant]
     Indication: DRUG USE FOR UNKNOWN INDICATION
     Dosage: DOSE UNIT:UNKNOWN
     Route: 065
     Dates: end: 20080927
  6. ITOPRIDE [Concomitant]
     Indication: DRUG USE FOR UNKNOWN INDICATION
     Dosage: DOSE UNIT:UNKNOWN
     Route: 065
     Dates: end: 20080927
  7. ESPOGEN [Concomitant]
     Indication: DRUG USE FOR UNKNOWN INDICATION
     Route: 065
     Dates: end: 20080927
  8. PAN 40 [Concomitant]
     Indication: DRUG USE FOR UNKNOWN INDICATION
     Route: 065
     Dates: end: 20080927
  9. BECOSULE [Concomitant]
     Indication: DRUG USE FOR UNKNOWN INDICATION
     Route: 065
     Dates: end: 20080927
  10. DILTIAZEM [Concomitant]
     Indication: DRUG USE FOR UNKNOWN INDICATION
     Route: 065
     Dates: end: 20080927

REACTIONS (2)
  - ASTHENIA [None]
  - CARDIAC ARREST [None]
